FAERS Safety Report 25635320 (Version 1)
Quarter: 2025Q3

REPORT INFORMATION
  Report Type: Spontaneous
  Country: US (occurrence: US)
  Receive Date: 20250802
  Receipt Date: 20250802
  Transmission Date: 20251020
  Serious: Yes (Death, Hospitalization, Other)
  Sender: NOVITIUM PHARMA
  Company Number: US-NOVITIUMPHARMA-2025USNVP01851

PATIENT
  Sex: Male

DRUGS (7)
  1. PREDNISONE [Suspect]
     Active Substance: PREDNISONE
     Indication: Addison^s disease
  2. MINOCYCLINE [Concomitant]
     Active Substance: MINOCYCLINE HYDROCHLORIDE
     Indication: Lepromatous leprosy
  3. MOXIFLOXACIN [Concomitant]
     Active Substance: MOXIFLOXACIN
     Indication: Lepromatous leprosy
  4. CLARITHROMYCIN [Concomitant]
     Active Substance: CLARITHROMYCIN
     Indication: Lepromatous leprosy
  5. DOXYCYCLINE [Concomitant]
     Active Substance: DOXYCYCLINE
  6. PIPERACILLIN SODIUM\TAZOBACTAM SODIUM [Concomitant]
     Active Substance: PIPERACILLIN SODIUM\TAZOBACTAM SODIUM
  7. VANCOMYCIN [Concomitant]
     Active Substance: VANCOMYCIN

REACTIONS (3)
  - Histoplasmosis disseminated [Fatal]
  - Immune-mediated adverse reaction [Unknown]
  - Product dose omission issue [Unknown]
